FAERS Safety Report 5326561-6 (Version None)
Quarter: 2007Q2

REPORT INFORMATION
  Report Type: 
  Country: None (occurrence: None)
  Receive Date: 20070510
  Receipt Date: 20070424
  Transmission Date: 20071010
  Serious: Yes (Hospitalization)
  Sender: FDA-Public Use
  Company Number: LP-T-AE-FEN-07-001

PATIENT
  Age: 29 Year
  Sex: Male
  Weight: 60 kg

DRUGS (2)
  1. FENTANYL TRANSDERMAL SYSTEM [Suspect]
     Dosage: 100 MCG/H TRANSDERMALLY
     Route: 062
     Dates: start: 20070415, end: 20070418
  2. NALTREXONE 50 MG [Suspect]
     Dosage: 50 MB BID ORALLY
     Route: 048
     Dates: start: 20070415, end: 20070418

REACTIONS (3)
  - ACUTE PSYCHOSIS [None]
  - HALLUCINATIONS, MIXED [None]
  - INSOMNIA [None]
